FAERS Safety Report 9262229 (Version 1)
Quarter: 2013Q2

REPORT INFORMATION
  Report Type: Spontaneous
  Country: US (occurrence: US)
  Receive Date: 20130430
  Receipt Date: 20130430
  Transmission Date: 20140414
  Serious: No
  Sender: FDA-Public Use
  Company Number: US-009507513-1304USA015872

PATIENT
  Age: 26 Year
  Sex: Female
  Weight: 101.13 kg

DRUGS (1)
  1. IMPLANON [Suspect]
     Indication: CONTRACEPTION
     Dosage: 1 68 MG ROD UP TO 3 YEARS
     Route: 059
     Dates: start: 201006, end: 20130410

REACTIONS (10)
  - Libido increased [Unknown]
  - Cholelithiasis [Unknown]
  - Local swelling [Recovering/Resolving]
  - Mood altered [Recovering/Resolving]
  - Alopecia [Not Recovered/Not Resolved]
  - Loss of libido [Recovered/Resolved]
  - Weight increased [Recovering/Resolving]
  - Acne [Recovering/Resolving]
  - Amenorrhoea [Not Recovered/Not Resolved]
  - Unintended pregnancy [Unknown]
